FAERS Safety Report 25600354 (Version 2)
Quarter: 2025Q3

REPORT INFORMATION
  Report Type: Report from Study
  Country: CL (occurrence: CL)
  Receive Date: 20250724
  Receipt Date: 20250731
  Transmission Date: 20251020
  Serious: Yes (Other)
  Sender: EMD SERONO INC
  Company Number: CL-Merck Healthcare KGaA-2025036414

PATIENT
  Sex: Female

DRUGS (1)
  1. REBIF [Suspect]
     Active Substance: INTERFERON BETA-1A
     Indication: Product used for unknown indication

REACTIONS (3)
  - Intracranial mass [Recovering/Resolving]
  - Spinal osteoarthritis [Recovering/Resolving]
  - Intervertebral disc protrusion [Recovering/Resolving]
